FAERS Safety Report 6387439-2 (Version None)
Quarter: 2009Q3

REPORT INFORMATION
  Report Type: 
  Country: None (occurrence: None)
  Receive Date: 20090930
  Receipt Date: 20090915
  Transmission Date: 20100115
  Serious: Yes (Death, Hospitalization)
  Sender: FDA-Public Use
  Company Number: 2009002583

PATIENT
  Age: 73 Year
  Sex: Female
  Weight: 53.5 kg

DRUGS (14)
  1. ERLOTINIB HYDROCHLORIDE [Suspect]
     Indication: PANCREATIC CARCINOMA
     Dosage: 100 MG, QD, ORAL, 75 MG, QD, ORAL
     Route: 048
     Dates: start: 20090227, end: 20090629
  2. ERLOTINIB HYDROCHLORIDE [Suspect]
     Indication: PANCREATIC CARCINOMA
     Dosage: 100 MG, QD, ORAL, 75 MG, QD, ORAL
     Route: 048
     Dates: start: 20090706, end: 20090724
  3. GEMZAR [Suspect]
     Indication: PANCREATIC CARCINOMA
     Dosage: 1560 MG, QW, INTRAVENOUS
     Route: 042
     Dates: start: 20090216, end: 20090720
  4. COUMADIN [Concomitant]
  5. ZINC (ZINC) [Concomitant]
  6. ATENOLOL [Concomitant]
  7. BUMEX [Concomitant]
  8. LAROTID (AMOXICILLIN TRIHYDRATE) [Concomitant]
  9. LACTULOSE [Concomitant]
  10. ENALAPRIL MALEATE [Concomitant]
  11. KYTRIL [Concomitant]
  12. SYNTHROID [Concomitant]
  13. NEXIUM [Concomitant]
  14. ALDACTONE [Concomitant]

REACTIONS (10)
  - ASPARTATE AMINOTRANSFERASE INCREASED [None]
  - BLOOD ALBUMIN DECREASED [None]
  - BLOOD ALKALINE PHOSPHATASE INCREASED [None]
  - BLOOD BILIRUBIN INCREASED [None]
  - BLOOD CALCIUM DECREASED [None]
  - BLOOD SODIUM DECREASED [None]
  - BLOOD UREA INCREASED [None]
  - HAEMOGLOBIN DECREASED [None]
  - MALIGNANT NEOPLASM PROGRESSION [None]
  - THROMBOCYTOPENIA [None]
